FAERS Safety Report 8417281-X (Version None)
Quarter: 2012Q2

REPORT INFORMATION
  Report Type: 
  Country: None (occurrence: None)
  Receive Date: 20120606
  Receipt Date: 20120530
  Transmission Date: 20120825
  Serious: Yes (Other)
  Sender: FDA-Public Use
  Company Number: US-B.I. PHARMACEUTICALS,INC./RIDGEFIELD-2012-EU-02928GD

PATIENT
  Age: 64 Year
  Sex: Male

DRUGS (3)
  1. DABIGATRAN ETEXILATE [Suspect]
     Indication: CEREBROVASCULAR ACCIDENT PROPHYLAXIS
     Route: 048
  2. DABIGATRAN ETEXILATE [Suspect]
     Indication: ATRIAL FIBRILLATION
  3. HEPARIN [Concomitant]
     Dosage: GOAL ACT OF 350 - 400 SECS

REACTIONS (1)
  - POST PROCEDURAL STROKE [None]
